FAERS Safety Report 4435265-3 (Version None)
Quarter: 2004Q3

REPORT INFORMATION
  Report Type: 
  Country: None (occurrence: None)
  Receive Date: 20040826
  Receipt Date: 20040811
  Transmission Date: 20050211
  Serious: Yes (Hospitalization)
  Sender: FDA-Public Use
  Company Number: 04P-167-0270500-00

PATIENT
  Age: 64 Year
  Sex: Female

DRUGS (9)
  1. HUMIRA [Suspect]
     Indication: RHEUMATOID ARTHRITIS
     Dosage: 40 MG, 1 IN 2 WK, SUBCUTANEOUS
     Route: 058
     Dates: start: 20031008
  2. PREDNISOLONE [Concomitant]
  3. ATORVASTATIN CALCIUM [Concomitant]
  4. AMITRIPTYLINE HCL [Concomitant]
  5. RABEPRAZOLE SODIUM [Concomitant]
  6. ROFECOXIB [Concomitant]
  7. DIDRONEL [Concomitant]
  8. LORMETAZEPAM [Concomitant]
  9. PARACETAMOL [Concomitant]

REACTIONS (1)
  - JOINT DISLOCATION [None]
